FAERS Safety Report 14927232 (Version 3)
Quarter: 2018Q3

REPORT INFORMATION
  Report Type: Spontaneous
  Country: US (occurrence: US)
  Receive Date: 20180523
  Receipt Date: 20180917
  Transmission Date: 20181010
  Serious: No
  Sender: FDA-Public Use
  Company Number: US-PFIZER INC-2018209018

PATIENT
  Age: 54 Year
  Sex: Female

DRUGS (2)
  1. FLECTOR [Suspect]
     Active Substance: DICLOFENAC EPOLAMINE
     Indication: OSTEOPOROSIS
     Dosage: UNK UNK, MONTHLY (2?3 PATCHES) (AT NIGHT)
     Route: 062
     Dates: start: 20180622, end: 201806
  2. FLECTOR [Suspect]
     Active Substance: DICLOFENAC EPOLAMINE
     Indication: RHEUMATOID ARTHRITIS

REACTIONS (5)
  - Overdose [Unknown]
  - Anaemia [Unknown]
  - Pain [Unknown]
  - Product use in unapproved indication [Unknown]
  - Insomnia [Unknown]

NARRATIVE: CASE EVENT DATE: 201806
